FAERS Safety Report 4281249-8 (Version None)
Quarter: 2004Q1

REPORT INFORMATION
  Report Type: 
  Country: None (occurrence: None)
  Receive Date: 20040112
  Receipt Date: 20030130
  Transmission Date: 20041129
  Serious: Yes (Death)
  Sender: FDA-Public Use
  Company Number: NSADSS2003005508

PATIENT
  Age: 75 Year
  Sex: Male

DRUGS (3)
  1. REOPRO [Suspect]
     Indication: ANGINA UNSTABLE
     Dosage: 1 IN 1 AS NECESSARY, INTRAVENOUS BOLUS
     Dates: start: 20030124, end: 20030124
  2. REOPRO [Suspect]
     Indication: ILL-DEFINED DISORDER
     Dosage: 1 IN 1 AS NECESSARY, INTRAVENOUS BOLUS
     Dates: start: 20030124, end: 20030124
  3. WARFARIN SODIUM [Concomitant]

REACTIONS (1)
  - HAEMORRHAGE INTRACRANIAL [None]
